FAERS Safety Report 8494293-1 (Version None)
Quarter: 2012Q3

REPORT INFORMATION
  Report Type: 
  Country: None (occurrence: None)
  Receive Date: 20120709
  Receipt Date: 20120627
  Transmission Date: 20120928
  Serious: Yes (Other)
  Sender: FDA-Public Use
  Company Number: JP-VERTEX PHARMACEUTICALS INC.-AE-2012-009729

PATIENT
  Age: 51 Year
  Sex: Male

DRUGS (3)
  1. REBETOL [Concomitant]
     Route: 048
     Dates: start: 20120523
  2. TELAVIC (TELAPREVIR) [Suspect]
     Route: 048
     Dates: start: 20120523
  3. PEG-INTRON [Concomitant]
     Route: 058
     Dates: start: 20120523

REACTIONS (3)
  - RENAL IMPAIRMENT [None]
  - BLOOD URIC ACID INCREASED [None]
  - BLOOD CREATININE INCREASED [None]
